FAERS Safety Report 25417653 (Version 1)
Quarter: 2025Q2

REPORT INFORMATION
  Report Type: Spontaneous
  Country: US (occurrence: None)
  Receive Date: 20250609
  Receipt Date: 20250609
  Transmission Date: 20250717
  Serious: Yes (Other)
  Sender: FDA-CTU
  Company Number: None

PATIENT
  Age: 65 Year
  Sex: Male
  Weight: 85.5 kg

DRUGS (8)
  1. PROZAC [Suspect]
     Active Substance: FLUOXETINE HYDROCHLORIDE
     Indication: Drug withdrawal syndrome
     Dates: start: 20241101, end: 20250307
  2. ZOLOFT [Suspect]
     Active Substance: SERTRALINE HYDROCHLORIDE
  3. LEXAPRO [Suspect]
     Active Substance: ESCITALOPRAM OXALATE
  4. GABAPENTIN [Suspect]
     Active Substance: GABAPENTIN
  5. CITALOPRAM [Suspect]
     Active Substance: CITALOPRAM
  6. BUSPAR [Suspect]
     Active Substance: BUSPIRONE HYDROCHLORIDE
  7. MIRTAZAPINE [Suspect]
     Active Substance: MIRTAZAPINE
  8. OMEGA 3 [Concomitant]
     Active Substance: CAPSAICIN

REACTIONS (9)
  - Drug withdrawal syndrome [None]
  - Erectile dysfunction [None]
  - Agitation [None]
  - Product communication issue [None]
  - Insomnia [None]
  - Tremor [None]
  - Akathisia [None]
  - Panic attack [None]
  - Dysphonia [None]

NARRATIVE: CASE EVENT DATE: 20241101
